FAERS Safety Report 10063004 (Version 1)
Quarter: 2014Q2

REPORT INFORMATION
  Report Type: Spontaneous
  Country: JP (occurrence: JP)
  Receive Date: 20140407
  Receipt Date: 20140407
  Transmission Date: 20141212
  Serious: Yes (Life-Threatening, Other)
  Sender: FDA-Public Use
  Company Number: JP-ASTRAZENECA-2014SE23852

PATIENT
  Age: 59 Year
  Sex: Female
  Weight: 50 kg

DRUGS (4)
  1. SEROQUEL [Suspect]
     Indication: SUICIDE ATTEMPT
     Route: 048
     Dates: start: 20140327, end: 20140327
  2. PSYCHOTROPIC AGENT [Concomitant]
     Indication: SUICIDE ATTEMPT
     Dates: start: 20140327, end: 20140327
  3. ANTIEPILEPTICS [Concomitant]
     Indication: SUICIDE ATTEMPT
     Dates: start: 20140327, end: 20140327
  4. HYPNOTICS AND SEDATIVES, ANTIANXIETICS [Concomitant]
     Indication: SUICIDE ATTEMPT
     Dates: start: 20140327, end: 20140327

REACTIONS (5)
  - Suicide attempt [Unknown]
  - Cardio-respiratory arrest [Unknown]
  - Coma [Unknown]
  - Bradycardia [Unknown]
  - Blood pressure decreased [Unknown]
